FAERS Safety Report 11777056 (Version 2)
Quarter: 2015Q4

REPORT INFORMATION
  Report Type: Spontaneous
  Country: US (occurrence: US)
  Receive Date: 20151125
  Receipt Date: 20151229
  Transmission Date: 20160304
  Serious: No
  Sender: FDA-Public Use
  Company Number: US-ASTRAZENECA-2015SF10923

PATIENT
  Sex: Male

DRUGS (1)
  1. BYDUREON [Suspect]
     Active Substance: EXENATIDE
     Route: 065

REACTIONS (6)
  - Injection site mass [Unknown]
  - Injection site extravasation [Unknown]
  - Headache [Unknown]
  - Drug dose omission [Unknown]
  - Blood glucose increased [Unknown]
  - Product quality issue [Unknown]
